FAERS Safety Report 9377503 (Version 1)
Quarter: 2013Q3

REPORT INFORMATION
  Report Type: Spontaneous
  Country: US (occurrence: US)
  Receive Date: 20130701
  Receipt Date: 20130701
  Transmission Date: 20140515
  Serious: Yes (Other)
  Sender: FDA-Public Use
  Company Number: US-PFIZER INC-2013191966

PATIENT
  Age: 72 Year
  Sex: Female
  Weight: 84.35 kg

DRUGS (3)
  1. CELEBREX [Suspect]
     Indication: INFLAMMATION
     Dosage: 200 MG ONCE A DAY
     Route: 048
     Dates: start: 201306, end: 201306
  2. CELEBREX [Suspect]
     Indication: PAIN
  3. COUMADINE [Concomitant]
     Dosage: UNK

REACTIONS (8)
  - Disorientation [Unknown]
  - Logorrhoea [Unknown]
  - Confusional state [Unknown]
  - Psychomotor hyperactivity [Unknown]
  - Inappropriate affect [Unknown]
  - Malaise [Unknown]
  - Influenza [Unknown]
  - Nausea [Unknown]
